FAERS Safety Report 4519817-8 (Version None)
Quarter: 2004Q4

REPORT INFORMATION
  Report Type: 
  Country: None (occurrence: None)
  Receive Date: 20041207
  Receipt Date: 20041125
  Transmission Date: 20050328
  Serious: Yes (Death)
  Sender: FDA-Public Use
  Company Number: FR-JNJFOC-20041106608

PATIENT
  Age: 54 Year
  Sex: Female

DRUGS (7)
  1. TOPALGIC [Suspect]
     Indication: SCIATICA
     Route: 049
  2. DICLOFENAC [Concomitant]
     Route: 065
  3. PARACETAMOL [Concomitant]
     Route: 065
  4. PROTON PUMP INHIBITOR [Concomitant]
     Route: 065
  5. SKENAN [Concomitant]
     Route: 065
  6. FORLAX [Concomitant]
     Route: 065
  7. MOTILIUM [Concomitant]
     Route: 065

REACTIONS (5)
  - ASPHYXIA [None]
  - DRUG LEVEL INCREASED [None]
  - DRUG SCREEN POSITIVE [None]
  - FOREIGN BODY ASPIRATION [None]
  - HEPATIC CIRRHOSIS [None]
